FAERS Safety Report 16258833 (Version 1)
Quarter: 2019Q2

REPORT INFORMATION
  Report Type: Spontaneous
  Country: US (occurrence: US)
  Receive Date: 20190326
  Receipt Date: 20190326
  Transmission Date: 20190711
  Serious: Yes (Hospitalization)
  Sender: FDA-Public Use
  Company Number: None

PATIENT
  Age: 71 Year
  Sex: Male
  Weight: 73.48 kg

DRUGS (1)
  1. COTRIMOXAZOLE [Suspect]
     Active Substance: SULFAMETHOXAZOLE\TRIMETHOPRIM
     Indication: URINARY TRACT INFECTION
     Dosage: ?          OTHER DOSE:800/160MG;?
     Route: 048
     Dates: start: 20180514, end: 20180604

REACTIONS (5)
  - Acute kidney injury [None]
  - Hyperkalaemia [None]
  - Rash [None]
  - Hyponatraemia [None]
  - Thrombocytopenia [None]

NARRATIVE: CASE EVENT DATE: 20180604
